FAERS Safety Report 16366731 (Version 2)
Quarter: 2019Q3

REPORT INFORMATION
  Report Type: Spontaneous
  Country: JP (occurrence: JP)
  Receive Date: 20190529
  Receipt Date: 20190703
  Transmission Date: 20191004
  Serious: Yes (Other)
  Sender: FDA-Public Use
  Company Number: JP-PFIZER INC-2019219171

PATIENT
  Age: 10 Year
  Sex: Male

DRUGS (2)
  1. HYDROCORTISONE. [Suspect]
     Active Substance: HYDROCORTISONE
     Dosage: 8 MG/M2, DAILY
     Route: 048
  2. HYDROCORTISONE. [Suspect]
     Active Substance: HYDROCORTISONE
     Indication: ADRENOCORTICAL INSUFFICIENCY ACUTE
     Dosage: 100 MG/M2, DAILY
     Route: 048

REACTIONS (1)
  - Diabetes mellitus [Recovered/Resolved]
